FAERS Safety Report 11840407 (Version 2)
Quarter: 2016Q1

REPORT INFORMATION
  Report Type: Spontaneous
  Country: US (occurrence: US)
  Receive Date: 20151216
  Receipt Date: 20160311
  Transmission Date: 20160525
  Serious: No
  Sender: FDA-Public Use
  Company Number: US-GALDERMA-US15008390

PATIENT
  Age: 59 Year
  Sex: Female

DRUGS (4)
  1. UNSPECIFIED TOPICAL MAKE UP [Concomitant]
     Route: 061
  2. CERAVE LOTION [Concomitant]
     Indication: DRY SKIN PROPHYLAXIS
     Route: 061
  3. MIRVASO [Suspect]
     Active Substance: BRIMONIDINE TARTRATE
     Indication: ROSACEA
     Dosage: 0.33%
     Route: 061
     Dates: start: 20151114, end: 20151116
  4. UNSPECIFIED MILD SOAP [Concomitant]
     Indication: THERAPEUTIC SKIN CARE TOPICAL
     Route: 061

REACTIONS (2)
  - Drug ineffective [Recovered/Resolved]
  - Erythema [Recovered/Resolved]

NARRATIVE: CASE EVENT DATE: 20151115
